FAERS Safety Report 13774202 (Version 1)
Quarter: 2017Q3

REPORT INFORMATION
  Report Type: Spontaneous
  Country: US (occurrence: US)
  Receive Date: 20170721
  Receipt Date: 20170721
  Transmission Date: 20171127
  Serious: Yes (Other)
  Sender: FDA-Public Use
  Company Number: US-BAYER-2017-134120

PATIENT
  Sex: Female

DRUGS (2)
  1. ALEVE [Suspect]
     Active Substance: NAPROXEN SODIUM
     Dosage: 1 DF, BID
  2. GLUCOSAMINE SULFATE W/CHONDROITIN [Concomitant]
     Dosage: 2 DF, QD

REACTIONS (1)
  - Drug dependence [Unknown]
